FAERS Safety Report 18856935 (Version 2)
Quarter: 2021Q1

REPORT INFORMATION
  Report Type: Spontaneous
  Country: US (occurrence: US)
  Receive Date: 20210208
  Receipt Date: 20210319
  Transmission Date: 20210420
  Serious: No
  Sender: FDA-Public Use
  Company Number: US-ASTRAZENECA-2021A022405

PATIENT
  Age: 51 Year
  Sex: Female
  Weight: 127 kg

DRUGS (2)
  1. BYDUREON BCISE [Suspect]
     Active Substance: EXENATIDE
     Indication: TYPE 2 DIABETES MELLITUS
     Route: 065
     Dates: start: 202101
  2. BYDUREON [Suspect]
     Active Substance: EXENATIDE
     Indication: TYPE 2 DIABETES MELLITUS
     Route: 065

REACTIONS (6)
  - Weight decreased [Recovered/Resolved]
  - Incorrect dose administered by device [Unknown]
  - Weight increased [Unknown]
  - Injection site haemorrhage [Unknown]
  - Diabetes mellitus inadequate control [Unknown]
  - Device mechanical issue [Unknown]

NARRATIVE: CASE EVENT DATE: 2020
